FAERS Safety Report 12637730 (Version 1)
Quarter: 2016Q3

REPORT INFORMATION
  Report Type: Spontaneous
  Country: US (occurrence: US)
  Receive Date: 20160809
  Receipt Date: 20160809
  Transmission Date: 20161109
  Serious: Yes (Congenital Anomaly)
  Sender: FDA-Public Use
  Company Number: US-ABBVIE-15P-163-1482192-00

PATIENT

DRUGS (1)
  1. DEPAKOTE [Suspect]
     Active Substance: DIVALPROEX SODIUM
     Indication: MATERNAL EXPOSURE TIMING UNSPECIFIED
     Route: 064

REACTIONS (9)
  - Physical disability [Unknown]
  - Attention deficit/hyperactivity disorder [Unknown]
  - Autism [Unknown]
  - Anhedonia [Unknown]
  - Cognitive disorder [Unknown]
  - Economic problem [Unknown]
  - Foetal exposure during pregnancy [Unknown]
  - Congenital urethral anomaly [Unknown]
  - Abnormal behaviour [Unknown]
